FAERS Safety Report 9865665 (Version 2)
Quarter: 2014Q1

REPORT INFORMATION
  Report Type: Spontaneous
  Country: US (occurrence: US)
  Receive Date: 20140203
  Receipt Date: 20140203
  Transmission Date: 20141002
  Serious: No
  Sender: FDA-Public Use
  Company Number: US-ALLERGAN-1305929US

PATIENT
  Age: 72 Year
  Sex: Male

DRUGS (3)
  1. RESTASIS [Suspect]
     Indication: DRY EYE
     Dosage: 2 GTT, BID
     Route: 047
     Dates: start: 20130409
  2. TYLENOL                            /00020001/ [Concomitant]
     Indication: SPONDYLITIS
     Dosage: UNK UNK, PRN
     Route: 048
  3. TRAVATAN Z [Concomitant]
     Indication: GLAUCOMA
     Dosage: 2 GTT, QPM
     Route: 047

REACTIONS (6)
  - Pupillary disorder [Recovering/Resolving]
  - Eyelids pruritus [Recovered/Resolved]
  - Instillation site pain [Recovered/Resolved]
  - Eye pruritus [Recovered/Resolved]
  - Ocular hyperaemia [Recovering/Resolving]
  - Drug hypersensitivity [Recovering/Resolving]
